FAERS Safety Report 19156706 (Version 1)
Quarter: 2021Q2

REPORT INFORMATION
  Report Type: Spontaneous
  Country: US (occurrence: US)
  Receive Date: 20210420
  Receipt Date: 20210420
  Transmission Date: 20210717
  Serious: Yes (Hospitalization)
  Sender: FDA-Public Use
  Company Number: US-ADVANZ PHARMA-202104002570

PATIENT

DRUGS (1)
  1. CLONIDINE. [Suspect]
     Active Substance: CLONIDINE
     Dosage: TABLET, 6?12 PILLS

REACTIONS (3)
  - Mental status changes [Recovering/Resolving]
  - Accidental exposure to product [Unknown]
  - Overdose [Unknown]
